FAERS Safety Report 5012488-6 (Version None)
Quarter: 2006Q2

REPORT INFORMATION
  Report Type: 
  Country: None (occurrence: None)
  Receive Date: 20060526
  Receipt Date: 20060519
  Transmission Date: 20061013
  Serious: Yes (Hospitalization)
  Sender: FDA-Public Use
  Company Number: TR-ABBOTT-06P-161-0333790-00

PATIENT
  Sex: Female

DRUGS (3)
  1. VALPROIC ACID [Suspect]
     Indication: TONIC CONVULSION
     Route: 065
  2. CARBAMAZEPINE [Suspect]
     Indication: TONIC CONVULSION
     Route: 065
  3. INOSINE PRANOBEX [Suspect]
     Indication: TONIC CONVULSION
     Route: 065

REACTIONS (2)
  - DRUG INEFFECTIVE [None]
  - SUBACUTE SCLEROSING PANENCEPHALITIS [None]
